FAERS Safety Report 4422630-3 (Version None)
Quarter: 2004Q3

REPORT INFORMATION
  Report Type: 
  Country: None (occurrence: None)
  Receive Date: 20040713
  Receipt Date: 20040301
  Transmission Date: 20050211
  Serious: No
  Sender: FDA-Public Use
  Company Number: PHEH2004US02571

PATIENT
  Age: 50 Year
  Sex: Female

DRUGS (3)
  1. ELIDEL [Suspect]
     Indication: HAND DERMATITIS
     Dosage: TOPICAL
     Route: 061
     Dates: start: 20030801, end: 20040227
  2. ZOLOFT [Concomitant]
  3. ALLEGRA-D [Concomitant]

REACTIONS (3)
  - APPLICATION SITE BURNING [None]
  - APPLICATION SITE DESQUAMATION [None]
  - EYE SWELLING [None]
